FAERS Safety Report 8920034 (Version 1)
Quarter: 2012Q4

REPORT INFORMATION
  Report Type: 
  Country: US (occurrence: US)
  Receive Date: 20121121
  Receipt Date: 20121121
  Transmission Date: 20130627
  Serious: No
  Sender: FDA-Public Use
  Company Number: US-BRISTOL-MYERS SQUIBB COMPANY-16422875

PATIENT
  Age: 79 Year
  Sex: Female

DRUGS (5)
  1. AVALIDE TABS 150MG/12.5MG [Suspect]
     Indication: BLOOD PRESSURE INCREASED
     Dosage: withdrawn on Feb of last year upto Aug
again restarted
1DF=2 pills
  2. INSULIN [Concomitant]
  3. ONGLYZA TABS [Concomitant]
  4. HYDRALAZINE [Concomitant]
  5. XANAX [Concomitant]

REACTIONS (1)
  - Drug effect decreased [Unknown]
